FAERS Safety Report 12443283 (Version 2)
Quarter: 2016Q2

REPORT INFORMATION
  Report Type: Spontaneous
  Country: US (occurrence: US)
  Receive Date: 20160607
  Receipt Date: 20160624
  Transmission Date: 20160815
  Serious: No
  Sender: FDA-Public Use
  Company Number: US-GLAXOSMITHKLINE-US2016071904

PATIENT
  Sex: Female

DRUGS (9)
  1. VITAMIN D3 [Concomitant]
     Active Substance: CHOLECALCIFEROL
  2. CALCIUM [Concomitant]
     Active Substance: CALCIUM
  3. MONTELUKAST [Concomitant]
     Active Substance: MONTELUKAST SODIUM
  4. ADVAIR DISKUS [Suspect]
     Active Substance: FLUTICASONE PROPIONATE\SALMETEROL XINAFOATE
     Indication: PRODUCT USED FOR UNKNOWN INDICATION
     Dosage: 1 PUFF(S), BID
  5. OCTREOTIDE. [Concomitant]
     Active Substance: OCTREOTIDE
  6. COQ10 [Concomitant]
     Active Substance: UBIDECARENONE
  7. ADVAIR HFA [Suspect]
     Active Substance: FLUTICASONE PROPIONATE\SALMETEROL XINAFOATE
     Indication: ASTHMA
     Dosage: 115/21 MCG 2 PUFF(S), BID
     Route: 055
     Dates: start: 201601
  8. VENTOLIN [Concomitant]
     Active Substance: ALBUTEROL SULFATE
  9. ADVAIR HFA [Suspect]
     Active Substance: FLUTICASONE PROPIONATE\SALMETEROL XINAFOATE
     Dosage: 230/21 MCG 2 PUFFS, BID
     Dates: start: 20160607

REACTIONS (5)
  - Choking sensation [Recovered/Resolved]
  - Drug ineffective [Not Recovered/Not Resolved]
  - Overdose [Recovered/Resolved]
  - Sensation of foreign body [Not Recovered/Not Resolved]
  - Asthma [Not Recovered/Not Resolved]

NARRATIVE: CASE EVENT DATE: 2016
